FAERS Safety Report 7333575-3 (Version None)
Quarter: 2011Q1

REPORT INFORMATION
  Report Type: 
  Country: None (occurrence: None)
  Receive Date: 20110304
  Receipt Date: 20110218
  Transmission Date: 20110831
  Serious: Yes (Hospitalization)
  Sender: FDA-Public Use
  Company Number: TT-MERCK-1103USA00493

PATIENT
  Age: 46 Year
  Sex: Male

DRUGS (1)
  1. HYDELTRA-TBA [Suspect]
     Route: 048

REACTIONS (2)
  - OSTEOPENIA [None]
  - DIABETIC HYPEROSMOLAR COMA [None]
